FAERS Safety Report 17108226 (Version 3)
Quarter: 2022Q1

REPORT INFORMATION
  Report Type: Spontaneous
  Country: CA (occurrence: CA)
  Receive Date: 20191203
  Receipt Date: 20220210
  Transmission Date: 20220423
  Serious: Yes (Death, Hospitalization, Other)
  Sender: FDA-Public Use
  Company Number: CA-NAPPMUNDI-CAN-2019-0010433

PATIENT
  Age: 37 Year
  Sex: Male

DRUGS (27)
  1. MORPHINE SULFATE [Suspect]
     Active Substance: MORPHINE SULFATE
     Indication: Pain
     Dosage: UNKNOWN
     Route: 065
  2. CLINDAMYCIN [Suspect]
     Active Substance: CLINDAMYCIN
     Indication: Product used for unknown indication
     Dosage: UNKNOWN
     Route: 065
  3. CLINDAMYCIN [Suspect]
     Active Substance: CLINDAMYCIN
     Dosage: UNK
     Route: 065
  4. SANDOSTATIN [Suspect]
     Active Substance: OCTREOTIDE ACETATE
     Indication: Pancreatic carcinoma
     Dosage: 40 MG, MONTHLY
     Route: 030
  5. SANDOSTATIN [Suspect]
     Active Substance: OCTREOTIDE ACETATE
     Indication: Neuroendocrine tumour
     Dosage: 30 MG, BIW
     Route: 030
  6. SANDOSTATIN [Suspect]
     Active Substance: OCTREOTIDE ACETATE
     Dosage: 20 MG, BIW
     Route: 030
  7. SANDOSTATIN [Suspect]
     Active Substance: OCTREOTIDE ACETATE
     Dosage: 30 MG, MONTHLY
     Route: 030
  8. SANDOSTATIN [Suspect]
     Active Substance: OCTREOTIDE ACETATE
     Dosage: UNKNOWN
     Route: 030
  9. SANDOSTATIN [Suspect]
     Active Substance: OCTREOTIDE ACETATE
     Dosage: 30 MG, BIW
     Route: 030
  10. SANDOSTATIN [Suspect]
     Active Substance: OCTREOTIDE ACETATE
     Dosage: 20 MG, BIW
     Route: 030
  11. SANDOSTATIN [Suspect]
     Active Substance: OCTREOTIDE ACETATE
     Dosage: 30 MG, MONTHLY
     Route: 030
  12. SANDOSTATIN [Suspect]
     Active Substance: OCTREOTIDE ACETATE
     Dosage: UNKNOWN
     Route: 030
  13. SANDOSTATIN [Suspect]
     Active Substance: OCTREOTIDE ACETATE
     Dosage: 30 MG, BIW
     Route: 030
  14. SANDOSTATIN [Suspect]
     Active Substance: OCTREOTIDE ACETATE
     Dosage: 30 MG, BIW
     Route: 030
  15. SANDOSTATIN [Suspect]
     Active Substance: OCTREOTIDE ACETATE
     Dosage: 30 MG, BIW
     Route: 030
  16. SANDOSTATIN [Suspect]
     Active Substance: OCTREOTIDE ACETATE
     Dosage: 40 MG, MONTHLY
     Route: 030
  17. SANDOSTATIN [Suspect]
     Active Substance: OCTREOTIDE ACETATE
     Dosage: 30 MG, BIW
     Route: 030
  18. SANDOSTATIN [Suspect]
     Active Substance: OCTREOTIDE ACETATE
     Dosage: 20 MG, BIW
     Route: 030
  19. SANDOSTATIN [Suspect]
     Active Substance: OCTREOTIDE ACETATE
     Dosage: 30 MG, MONTHLY
     Route: 030
  20. SANDOSTATIN [Suspect]
     Active Substance: OCTREOTIDE ACETATE
     Dosage: UNK
     Route: 030
  21. SANDOSTATIN [Suspect]
     Active Substance: OCTREOTIDE ACETATE
     Dosage: 30 MG, BIW
     Route: 030
  22. SANDOSTATIN [Suspect]
     Active Substance: OCTREOTIDE ACETATE
     Dosage: 30 MG, BIW
     Route: 030
  23. SANDOSTATIN [Suspect]
     Active Substance: OCTREOTIDE ACETATE
     Dosage: 30 MG, BIW
     Route: 030
  24. LOVENOX [Concomitant]
     Active Substance: ENOXAPARIN SODIUM
     Indication: Thrombosis
     Dosage: 80 MG, BID
     Route: 065
  25. LOVENOX [Concomitant]
     Active Substance: ENOXAPARIN SODIUM
     Dosage: UNK
     Route: 065
  26. METHADONE [Concomitant]
     Active Substance: METHADONE HYDROCHLORIDE
     Indication: Product used for unknown indication
     Dosage: 10 MG, TID
     Route: 065
  27. METHADONE [Concomitant]
     Active Substance: METHADONE HYDROCHLORIDE
     Dosage: UNK
     Route: 065

REACTIONS (70)
  - Death [Fatal]
  - Malignant neoplasm progression [Fatal]
  - Metastases to lung [Fatal]
  - Abdominal abscess [Fatal]
  - Arthralgia [Fatal]
  - Blood glucose fluctuation [Fatal]
  - Blood glucose increased [Fatal]
  - Cellulitis [Fatal]
  - Contusion [Fatal]
  - Cough [Fatal]
  - Device occlusion [Fatal]
  - Device toxicity [Fatal]
  - Fatigue [Fatal]
  - Headache [Fatal]
  - Hepatic neoplasm [Fatal]
  - Hypersomnia [Fatal]
  - Hypertension [Fatal]
  - Inappropriate schedule of product administration [Fatal]
  - Injection site mass [Fatal]
  - Injection site pain [Fatal]
  - Liver function test abnormal [Fatal]
  - Lower respiratory tract infection [Fatal]
  - Malaise [Fatal]
  - Muscle spasms [Fatal]
  - Myocardial infarction [Fatal]
  - Nausea [Fatal]
  - Needle issue [Fatal]
  - Oxygen consumption decreased [Fatal]
  - Pain [Fatal]
  - Pallor [Fatal]
  - Peripheral swelling [Fatal]
  - Pulmonary embolism [Fatal]
  - Renal impairment [Fatal]
  - Restlessness [Fatal]
  - Stress [Fatal]
  - Vomiting [Fatal]
  - Withdrawal syndrome [Fatal]
  - Abdominal discomfort [Fatal]
  - Abdominal mass [Fatal]
  - Abdominal pain [Fatal]
  - Abdominal pain upper [Fatal]
  - Agitation [Fatal]
  - Asthenia [Fatal]
  - Back injury [Fatal]
  - Biliary obstruction [Fatal]
  - Blister [Fatal]
  - Blood calcium decreased [Fatal]
  - Blood glucose decreased [Fatal]
  - Dehydration [Fatal]
  - Discomfort [Fatal]
  - Eating disorder [Fatal]
  - Eye injury [Fatal]
  - Fall [Fatal]
  - Feeling abnormal [Fatal]
  - Foot fracture [Fatal]
  - Hypoaesthesia [Fatal]
  - Illness [Fatal]
  - Injection site discomfort [Fatal]
  - Liver disorder [Fatal]
  - Localised infection [Fatal]
  - Loss of consciousness [Fatal]
  - Metastases to liver [Fatal]
  - Nasal congestion [Fatal]
  - Nasopharyngitis [Fatal]
  - Pancreatic carcinoma [Fatal]
  - Paraesthesia [Fatal]
  - Product use in unapproved indication [Fatal]
  - Seizure [Fatal]
  - Sneezing [Fatal]
  - Somnambulism [Fatal]
